FAERS Safety Report 4615257-1 (Version None)
Quarter: 2005Q1

REPORT INFORMATION
  Report Type: 
  Country: None (occurrence: None)
  Receive Date: 20050317
  Receipt Date: 20050302
  Transmission Date: 20050727
  Serious: No
  Sender: FDA-Public Use
  Company Number: 10458

PATIENT

DRUGS (3)
  1. DOPAMINE [Suspect]
     Indication: HYPOTENSION
     Dosage: 20 MCG/KG ONCE IV
     Route: 042
     Dates: start: 20050201, end: 20050201
  2. AMPICILLIN [Concomitant]
  3. GENTAMICIN [Concomitant]

REACTIONS (2)
  - BLOOD PRESSURE INCREASED [None]
  - DRUG EFFECT DECREASED [None]
